FAERS Safety Report 8836775 (Version 2)
Quarter: 2012Q4

REPORT INFORMATION
  Report Type: Report from Study
  Country: US (occurrence: US)
  Receive Date: 20121012
  Receipt Date: 20121109
  Transmission Date: 20130627
  Serious: Yes (Other)
  Sender: FDA-Public Use
  Company Number: US-US-EMD SERONO, INC.-7165747

PATIENT
  Sex: Female
  Weight: 64 kg

DRUGS (6)
  1. REBIF [Suspect]
     Indication: MULTIPLE SCLEROSIS
     Route: 058
     Dates: start: 20110509
  2. VALIUM [Concomitant]
     Indication: ANXIETY
  3. VALIUM [Concomitant]
     Indication: DEPRESSION
  4. PROZAC [Concomitant]
     Indication: ANXIETY
  5. PROZAC [Concomitant]
     Indication: DEPRESSION
  6. OXYCODONE [Concomitant]
     Indication: PAIN

REACTIONS (6)
  - Dental operation [Recovered/Resolved]
  - Nausea [Unknown]
  - Aphagia [Recovered/Resolved]
  - Weight decreased [Unknown]
  - Depression [Unknown]
  - Injection site pain [Not Recovered/Not Resolved]
